FAERS Safety Report 7185691-7 (Version None)
Quarter: 2010Q4

REPORT INFORMATION
  Report Type: 
  Country: None (occurrence: None)
  Receive Date: 20101123
  Receipt Date: 20100910
  Transmission Date: 20110411
  Serious: No
  Sender: FDA-Public Use
  Company Number: 018630

PATIENT
  Sex: Female
  Weight: 53.5 kg

DRUGS (10)
  1. CIMZIA [Suspect]
     Indication: RHEUMATOID ARTHRITIS
     Dosage: (TWO SHOTS MONTHLY SUBCUTANEOUS)
     Route: 058
     Dates: start: 20100601, end: 20100801
  2. METHOTREXATE [Concomitant]
  3. MUSCLE RELAXANTS [Concomitant]
  4. TOPIRAMATE [Concomitant]
  5. CELEXA [Concomitant]
  6. ESOMEPRAZOLE SODIUM [Concomitant]
  7. FOLIC ACID [Concomitant]
  8. AMITRIPTYLINE [Concomitant]
  9. ZOFRAN [Concomitant]
  10. XANAX [Concomitant]

REACTIONS (8)
  - DYSPNOEA [None]
  - DYSURIA [None]
  - FATIGUE [None]
  - NIGHT SWEATS [None]
  - POLLAKIURIA [None]
  - PRURITUS GENERALISED [None]
  - PYREXIA [None]
  - RED BLOOD CELL ABNORMALITY [None]
